FAERS Safety Report 9681645 (Version 2)
Quarter: 2013Q4

REPORT INFORMATION
  Report Type: Spontaneous
  Country: US (occurrence: US)
  Receive Date: 20131111
  Receipt Date: 20131114
  Transmission Date: 20140711
  Serious: Yes (Other)
  Sender: FDA-Public Use
  Company Number: CHPA2013US016866

PATIENT
  Age: 89 Year
  Sex: Female

DRUGS (4)
  1. VOLTAREN GEL [Suspect]
     Indication: ARTHRITIS
     Dosage: UNK, BID
     Route: 061
     Dates: start: 20131029, end: 20131029
  2. VOLTAREN GEL [Suspect]
     Indication: MYALGIA
     Dosage: UNK, QID
     Route: 061
     Dates: start: 20131030, end: 20131030
  3. VOLTAREN GEL [Suspect]
     Indication: OFF LABEL USE
  4. VOLTAREN GEL [Suspect]
     Indication: OFF LABEL USE

REACTIONS (4)
  - Flushing [Recovered/Resolved]
  - Swelling face [Recovered/Resolved]
  - Rash [Recovered/Resolved]
  - Therapeutic response unexpected [Unknown]
